FAERS Safety Report 13709832 (Version 1)
Quarter: 2017Q3

REPORT INFORMATION
  Report Type: Spontaneous
  Country: US (occurrence: US)
  Receive Date: 20170703
  Receipt Date: 20170703
  Transmission Date: 20171127
  Serious: Yes (Hospitalization, Other)
  Sender: FDA-Public Use
  Company Number: US-ROCHE-1953370

PATIENT
  Age: 67 Year
  Sex: Female
  Weight: 44.49 kg

DRUGS (5)
  1. FASLODEX [Concomitant]
     Active Substance: FULVESTRANT
     Dosage: ONCE A MONTH INJECTIONS
     Route: 065
  2. XELODA [Suspect]
     Active Substance: CAPECITABINE
     Indication: BREAST CANCER METASTATIC
     Dosage: 3 PILLS ONCE IN THE MORNING + 3 PILLS ONCE AT NIGHT
     Route: 048
     Dates: start: 201701, end: 201703
  3. IBRANCE [Suspect]
     Active Substance: PALBOCICLIB
     Route: 048
     Dates: start: 20170601
  4. IBRANCE [Suspect]
     Active Substance: PALBOCICLIB
     Indication: BREAST CANCER METASTATIC
     Dosage: 1 CAPSULE A DAY, 3 WEEKS ON AND 1 WK OFF
     Route: 048
     Dates: start: 20161124, end: 201701
  5. SYNTHROID [Concomitant]
     Active Substance: LEVOTHYROXINE SODIUM
     Route: 065

REACTIONS (9)
  - Rib fracture [Unknown]
  - Pulmonary oedema [Unknown]
  - Food intolerance [Recovered/Resolved]
  - Drug intolerance [Recovered/Resolved]
  - Malnutrition [Recovered/Resolved]
  - Fall [Unknown]
  - Dehydration [Recovered/Resolved]
  - Asthenia [Recovered/Resolved]
  - Diarrhoea [Recovered/Resolved]

NARRATIVE: CASE EVENT DATE: 2017
